FAERS Safety Report 23604534 (Version 1)
Quarter: 2024Q1

REPORT INFORMATION
  Report Type: Spontaneous
  Country: KR (occurrence: KR)
  Receive Date: 20240307
  Receipt Date: 20240307
  Transmission Date: 20240409
  Serious: Yes (Other)
  Sender: FDA-Public Use
  Company Number: KR-BAXTER-2024BAX014050

PATIENT
  Sex: Female

DRUGS (2)
  1. CALCIUM CHLORIDE\DEXTROSE\MAGNESIUM CHLORIDE\SODIUM CHLORIDE [Suspect]
     Active Substance: CALCIUM CHLORIDE\DEXTROSE\MAGNESIUM CHLORIDE\SODIUM CHLORIDE
     Dosage: 4 CYCLES PER DAY VIA AUTOMATED PERITONEAL DIALYSIS (APD)
     Route: 033
  2. CALCIUM CHLORIDE\DEXTROSE\MAGNESIUM CHLORIDE\SODIUM CHLORIDE [Suspect]
     Active Substance: CALCIUM CHLORIDE\DEXTROSE\MAGNESIUM CHLORIDE\SODIUM CHLORIDE
     Dosage: 4 CYCLES PER DAY VIA CONTINUOUS AMBULATORY PERITONEAL DIALYSIS (CAPD)
     Route: 033

REACTIONS (3)
  - Peritonitis [Unknown]
  - Oedema [Unknown]
  - Generalised oedema [Unknown]
